FAERS Safety Report 6579487-4 (Version None)
Quarter: 2010Q1

REPORT INFORMATION
  Report Type: 
  Country: None (occurrence: None)
  Receive Date: 20100212
  Receipt Date: 20100205
  Transmission Date: 20100710
  Serious: Yes (Other)
  Sender: FDA-Public Use
  Company Number: GB-TEVA-223536ISR

PATIENT
  Age: 77 Year
  Sex: Male
  Weight: 71 kg

DRUGS (1)
  1. PRAVASTATIN [Suspect]
     Indication: PROPHYLAXIS
     Route: 048
     Dates: start: 20090701, end: 20091228

REACTIONS (2)
  - COGNITIVE DISORDER [None]
  - CONFUSIONAL STATE [None]
